FAERS Safety Report 8308449-1 (Version None)
Quarter: 2012Q2

REPORT INFORMATION
  Report Type: 
  Country: None (occurrence: None)
  Receive Date: 20120424
  Receipt Date: 20120420
  Transmission Date: 20120825
  Serious: Yes (Hospitalization)
  Sender: FDA-Public Use
  Company Number: US-ROCHE-1061621

PATIENT
  Sex: Male
  Weight: 69.7 kg

DRUGS (8)
  1. AVASTIN [Suspect]
     Indication: GLIOBLASTOMA
     Route: 042
     Dates: start: 20110414, end: 20120206
  2. KEPPRA [Concomitant]
     Route: 048
  3. DECADRON [Concomitant]
  4. VORINOSTAT [Suspect]
     Indication: GLIOBLASTOMA
     Dates: start: 20110414, end: 20120213
  5. SENOKOT [Concomitant]
  6. TEMODAR [Concomitant]
     Route: 048
     Dates: start: 20110414, end: 20120227
  7. DECADRON [Concomitant]
     Route: 048
  8. ATIVAN [Concomitant]

REACTIONS (1)
  - BASAL GANGLIA INFARCTION [None]
